FAERS Safety Report 7258276-1 (Version None)
Quarter: 2011Q1

REPORT INFORMATION
  Report Type: 
  Country: None (occurrence: None)
  Receive Date: 20110129
  Receipt Date: 20100713
  Transmission Date: 20110831
  Serious: No
  Sender: FDA-Public Use
  Company Number: US-ABBOTT-10P-163-0657930-00

PATIENT
  Sex: Male

DRUGS (3)
  1. CITALOPRAM [Concomitant]
     Indication: DEPRESSION
     Dates: start: 20091101
  2. HUMIRA [Suspect]
     Indication: ANKYLOSING SPONDYLITIS
     Dates: start: 20091101
  3. ALPRAZOLAM [Concomitant]
     Indication: ANXIETY
     Dosage: UNKNOWN
     Dates: start: 20091101

REACTIONS (2)
  - PAIN [None]
  - MALAISE [None]
